FAERS Safety Report 9768862 (Version 1)
Quarter: 2013Q3

REPORT INFORMATION
  Report Type: Spontaneous
  Country: US (occurrence: None)
  Receive Date: 20130828
  Receipt Date: 20130828
  Transmission Date: 20140515
  Serious: Yes (Other)
  Sender: FDA-Public Use
  Company Number: 163-21880-13080045

PATIENT
  Age: 59 Year
  Sex: Male
  Weight: 106 kg

DRUGS (2)
  1. REVLIMID (LENALIDOMIDE) (25 MILLIGRAM, CAPSULES) [Suspect]
     Indication: PLASMA CELL MYELOMA
     Dosage: 21 IN 28 D?TEMPORARILY INTERRUPTED
     Route: 048
     Dates: start: 20121031
  2. EFFERENT [Concomitant]

REACTIONS (4)
  - Pneumonia [None]
  - Rash pruritic [None]
  - Stent placement [None]
  - Cardiovascular disorder [None]
